FAERS Safety Report 12331088 (Version 1)
Quarter: 2016Q2

REPORT INFORMATION
  Report Type: Spontaneous
  Country: US (occurrence: US)
  Receive Date: 20160504
  Receipt Date: 20160504
  Transmission Date: 20160815
  Serious: Yes (Other)
  Sender: FDA-Public Use
  Company Number: US-ELI_LILLY_AND_COMPANY-US201604009160

PATIENT
  Sex: Female

DRUGS (3)
  1. HUMALOG MIX75/25 [Suspect]
     Active Substance: INSULIN LISPRO
     Dosage: 9 U, EACH EVENING
     Route: 065
     Dates: start: 201502
  2. HUMALOG MIX75/25 [Suspect]
     Active Substance: INSULIN LISPRO
     Indication: PRODUCT USED FOR UNKNOWN INDICATION
     Dosage: 14 U, EACH MORNING
     Route: 065
     Dates: start: 201502
  3. HUMALOG [Suspect]
     Active Substance: INSULIN LISPRO
     Indication: PRODUCT USED FOR UNKNOWN INDICATION
     Dosage: UNK UNK, PRN
     Route: 065

REACTIONS (7)
  - Breast cancer [Recovered/Resolved]
  - Macular degeneration [Unknown]
  - Thyroid cancer stage III [Unknown]
  - Visual acuity reduced [Not Recovered/Not Resolved]
  - Hypoacusis [Unknown]
  - Disorganised speech [Unknown]
  - Glaucoma [Unknown]

NARRATIVE: CASE EVENT DATE: 2011
